FAERS Safety Report 5465533-8 (Version None)
Quarter: 2007Q3

REPORT INFORMATION
  Report Type: 
  Country: None (occurrence: None)
  Receive Date: 20070924
  Receipt Date: 20031028
  Transmission Date: 20080115
  Serious: Yes (Other)
  Sender: FDA-Public Use
  Company Number: DE-PFIZER INC-2006120596

PATIENT

DRUGS (2)
  1. IRINOTECAN HCL [Suspect]
     Indication: NON-SMALL CELL LUNG CANCER
  2. DOCETAXEL [Suspect]
     Indication: NON-SMALL CELL LUNG CANCER

REACTIONS (1)
  - CONJUNCTIVITIS [None]
